FAERS Safety Report 6251889-5 (Version None)
Quarter: 2009Q2

REPORT INFORMATION
  Report Type: 
  Country: None (occurrence: None)
  Receive Date: 20090630
  Receipt Date: 20090615
  Transmission Date: 20091009
  Serious: Yes (Death, Life-Threatening, Hospitalization)
  Sender: FDA-Public Use
  Company Number: DE-GENENTECH-279537

PATIENT
  Sex: Female

DRUGS (3)
  1. BEVACIZUMAB [Suspect]
     Indication: BREAST CANCER METASTATIC
     Dosage: 10 MG/KG, UNK
     Route: 042
     Dates: start: 20090219
  2. BONDRONAT [Concomitant]
     Indication: DRUG USE FOR UNKNOWN INDICATION
     Dosage: 6 MG, UNK
     Route: 042
     Dates: start: 20090219
  3. TAXOL [Concomitant]
     Indication: DRUG USE FOR UNKNOWN INDICATION
     Dosage: 167 MG, UNK
     Dates: start: 20090219, end: 20090226

REACTIONS (8)
  - ATRIAL FLUTTER [None]
  - DIVERTICULITIS [None]
  - GASTROINTESTINAL STOMA COMPLICATION [None]
  - LARGE INTESTINE PERFORATION [None]
  - PLEURAL EFFUSION [None]
  - PSYCHOTIC DISORDER [None]
  - TACHYARRHYTHMIA [None]
  - WOUND DEHISCENCE [None]
